FAERS Safety Report 23643354 (Version 1)
Quarter: 2024Q1

REPORT INFORMATION
  Report Type: Spontaneous
  Country: US (occurrence: None)
  Receive Date: 20240316
  Receipt Date: 20240316
  Transmission Date: 20240410
  Serious: Yes (Life-Threatening, Hospitalization, Disabling, Other)
  Sender: FDA-Public Use
  Company Number: None

PATIENT
  Age: 83 Year
  Sex: Male
  Weight: 72 kg

DRUGS (18)
  1. DIETARY SUPPLEMENT [Suspect]
     Active Substance: DIETARY SUPPLEMENT
     Indication: Back pain
     Route: 048
     Dates: start: 20240216, end: 20240305
  2. TAVR [Concomitant]
  3. Tendyne mitral valve [Concomitant]
  4. mitraclip [Concomitant]
  5. ATORVASTATIN [Concomitant]
     Active Substance: ATORVASTATIN
  6. AMLODIPINE [Concomitant]
     Active Substance: AMLODIPINE BESYLATE
  7. AMIODARONE [Concomitant]
     Active Substance: AMIODARONE
  8. ASPIRIN [Concomitant]
     Active Substance: ASPIRIN
  9. WARFARIN [Concomitant]
     Active Substance: WARFARIN
  10. BUMETANIDE [Concomitant]
     Active Substance: BUMETANIDE
  11. TAMSULOSIN [Concomitant]
     Active Substance: TAMSULOSIN
  12. FERROUS SULFATE [Concomitant]
     Active Substance: FERROUS SULFATE
  13. CINNAMON [Concomitant]
     Active Substance: CINNAMON
  14. VITAMINS [Concomitant]
     Active Substance: VITAMINS
  15. NIACIN [Concomitant]
     Active Substance: NIACIN
  16. COENZYME Q10 [Concomitant]
     Active Substance: DIETARY SUPPLEMENT\UBIDECARENONE
  17. MIRALAX [Concomitant]
     Active Substance: POLYETHYLENE GLYCOL 3350
  18. COUMADIN [Suspect]
     Active Substance: WARFARIN SODIUM

REACTIONS (5)
  - Gastrointestinal ulcer haemorrhage [None]
  - Transfusion [None]
  - Drug interaction [None]
  - International normalised ratio increased [None]
  - Asthenia [None]

NARRATIVE: CASE EVENT DATE: 20240305
